FAERS Safety Report 9149439 (Version 1)
Quarter: 2013Q1

REPORT INFORMATION
  Report Type: Spontaneous
  Country: FR (occurrence: FR)
  Receive Date: 20130308
  Receipt Date: 20130308
  Transmission Date: 20140127
  Serious: Yes (Hospitalization)
  Sender: FDA-Public Use
  Company Number: FR-B.I. PHARMACEUTICALS,INC./RIDGEFIELD-2013-FF-00590FF

PATIENT
  Age: 80 Year
  Sex: Female

DRUGS (7)
  1. PRADAXA [Suspect]
     Dosage: 220 MG
     Route: 048
     Dates: start: 20120919, end: 20121111
  2. ALDACTAZINE [Suspect]
     Route: 048
     Dates: start: 20110329, end: 20121111
  3. COVERSYL [Suspect]
     Dosage: 7.5 MG
     Route: 048
     Dates: end: 20121111
  4. METFORMINE [Suspect]
     Route: 048
  5. AMIODARONE [Suspect]
     Route: 048
     Dates: start: 20011105
  6. HEMIGOXINE NATIVELLE [Suspect]
     Dosage: 0.125 MG
     Route: 048
     Dates: start: 20051216
  7. LEVOTHYROX [Suspect]
     Route: 048

REACTIONS (1)
  - Transient ischaemic attack [Recovered/Resolved]
